FAERS Safety Report 6796211-0 (Version None)
Quarter: 2010Q2

REPORT INFORMATION
  Report Type: 
  Country: None (occurrence: None)
  Receive Date: 20100624
  Receipt Date: 20100624
  Transmission Date: 20101027
  Serious: Yes (Life-Threatening)
  Sender: FDA-Public Use
  Company Number: None

PATIENT
  Age: 6 Year
  Sex: Female
  Weight: 36.2 kg

DRUGS (1)
  1. TOPIRAMATE [Suspect]
     Indication: CONVULSION
     Dosage: 150 MG BID 3 TABLETS PO
     Route: 048
     Dates: start: 20100501, end: 20100601

REACTIONS (3)
  - CONVULSION [None]
  - DROP ATTACKS [None]
  - PRODUCT SUBSTITUTION ISSUE [None]
